FAERS Safety Report 17599630 (Version 1)
Quarter: 2020Q1

REPORT INFORMATION
  Report Type: Spontaneous
  Country: US (occurrence: US)
  Receive Date: 20200330
  Receipt Date: 20200330
  Transmission Date: 20200409
  Serious: Yes (Other)
  Sender: FDA-Public Use
  Company Number: US-PFIZER INC-2020131627

PATIENT
  Age: 43 Year
  Sex: Male

DRUGS (8)
  1. DEXAMETHASONE. [Suspect]
     Active Substance: DEXAMETHASONE
     Indication: MANTLE CELL LYMPHOMA
     Dosage: UNK
  2. ETOPOSIDE. [Suspect]
     Active Substance: ETOPOSIDE
     Indication: MANTLE CELL LYMPHOMA
     Dosage: UNK AUTOLOGOUS STEM CELL TRANSPLANT (PRETRANSPLANT REGIMEN OF BUSULFAN, CYCLOPHOSPHAMIDE, ETOPOSIDE)
  3. DOXORUBICIN HCL [Suspect]
     Active Substance: DOXORUBICIN HYDROCHLORIDE
     Indication: MANTLE CELL LYMPHOMA
     Dosage: UNK
  4. CYTARABINE. [Suspect]
     Active Substance: CYTARABINE
     Indication: MANTLE CELL LYMPHOMA
     Dosage: UNK
  5. CYCLOPHOSPHAMIDE. [Suspect]
     Active Substance: CYCLOPHOSPHAMIDE
     Indication: MANTLE CELL LYMPHOMA
     Dosage: UNK AUTOLOGOUS STEM CELL TRANSPLANT (PRETRANSPLANT REGIMEN OF BUSULFAN, CYCLOPHOSPHAMIDE, ETOPOSIDE)
  6. BUSULFAN. [Suspect]
     Active Substance: BUSULFAN
     Indication: MANTLE CELL LYMPHOMA
     Dosage: UNK AUTOLOGOUS STEM CELL TRANSPLANT (PRETRANSPLANT REGIMEN OF BUSULFAN, CYCLOPHOSPHAMIDE, ETOPOSIDE)
  7. METHOTREXATE SODIUM. [Suspect]
     Active Substance: METHOTREXATE SODIUM
     Indication: MANTLE CELL LYMPHOMA
     Dosage: UNK
  8. VINCRISTINE SULFATE. [Suspect]
     Active Substance: VINCRISTINE SULFATE
     Indication: MANTLE CELL LYMPHOMA
     Dosage: UNK

REACTIONS (1)
  - Sweat gland tumour [Unknown]
